FAERS Safety Report 23279587 (Version 2)
Quarter: 2023Q4

REPORT INFORMATION
  Report Type: Spontaneous
  Country: RO (occurrence: RO)
  Receive Date: 20231210
  Receipt Date: 20231228
  Transmission Date: 20240110
  Serious: Yes (Death, Other)
  Sender: FDA-Public Use
  Company Number: RO-AUROBINDO-AUR-APL-2023-077213

PATIENT
  Sex: Male
  Weight: 2.3 kg

DRUGS (14)
  1. CIPROFLOXACIN [Suspect]
     Active Substance: CIPROFLOXACIN
     Indication: Serratia infection
     Dosage: 20 MILLIGRAM/KILOGRAM, DAILY
     Route: 065
  2. MEROPENEM [Suspect]
     Active Substance: MEROPENEM
     Indication: Serratia infection
     Dosage: 40 MILLIGRAM/KILOGRAM, TWO TIMES A DAY
     Route: 042
  3. VANCOMYCIN [Suspect]
     Active Substance: VANCOMYCIN
     Indication: Serratia infection
     Dosage: 15 MILLIGRAM/KILOGRAM, TWO TIMES A DAY
     Route: 042
  4. NETILMICIN [Suspect]
     Active Substance: NETILMICIN
     Indication: Serratia infection
     Dosage: 4 MILLIGRAM/KILOGRAM, DAILY
     Route: 065
  5. CHLORAMPHENICOL [Suspect]
     Active Substance: CHLORAMPHENICOL
     Indication: Serratia infection
     Dosage: 10 MILLIGRAM/KILOGRAM, DAILY
  6. AMIKACIN [Suspect]
     Active Substance: AMIKACIN
     Indication: Serratia infection
     Dosage: 10 MILLIGRAM/KILOGRAM, 3 TIMES A DAY
     Route: 042
  7. AMIKACIN [Suspect]
     Active Substance: AMIKACIN
     Dosage: 5 MILLIGRAM/KILOGRAM, DAILY
  8. AZTREONAM [Suspect]
     Active Substance: AZTREONAM
     Indication: Serratia infection
     Dosage: 30 MILLIGRAM/KILOGRAM, 3 TIMES A DAY
     Route: 042
  9. GENTAMICIN [Suspect]
     Active Substance: GENTAMICIN
     Indication: Serratia infection
     Dosage: 2 MILLIGRAM/KILOGRAM, DAILY
  10. FLUCONAZOLE [Concomitant]
     Active Substance: FLUCONAZOLE
     Indication: Antifungal treatment
     Dosage: UNK
     Route: 065
  11. PHENYTOIN [Concomitant]
     Active Substance: PHENYTOIN
     Indication: Product used for unknown indication
     Dosage: 15 MILLIGRAM/KILOGRAM WITH A SINGLE DOSE
     Route: 065
  12. PHENYTOIN [Concomitant]
     Active Substance: PHENYTOIN
     Dosage: 6-8 MILLIGRAM/KILOGRAM IN TWO DIVIDED DOSES
     Route: 065
  13. DIAZEPAM [Concomitant]
     Active Substance: DIAZEPAM
     Indication: Product used for unknown indication
     Dosage: UNK
     Route: 065
  14. DEXAMETHASONE [Concomitant]
     Active Substance: DEXAMETHASONE
     Indication: Product used for unknown indication
     Dosage: UNK
     Route: 065

REACTIONS (2)
  - Candida infection [Fatal]
  - Drug ineffective [Fatal]
